FAERS Safety Report 6400689-1 (Version None)
Quarter: 2009Q4

REPORT INFORMATION
  Report Type: 
  Country: None (occurrence: None)
  Receive Date: 20091014
  Receipt Date: 20091002
  Transmission Date: 20100525
  Serious: Yes (Hospitalization)
  Sender: FDA-Public Use
  Company Number: DE-PFIZER INC-2009271479

PATIENT

DRUGS (7)
  1. SUNITINIB MALATE [Suspect]
     Indication: RENAL CELL CARCINOMA
     Dosage: 50 MG, 1X/DAY
     Route: 048
     Dates: end: 20090807
  2. PREDNISON [Concomitant]
     Dosage: UNK
     Dates: start: 20090204
  3. DICLAC [Concomitant]
     Dosage: UNK
     Dates: start: 20090204
  4. PANTOZOL [Concomitant]
     Indication: RENAL CELL CARCINOMA
     Dosage: UNK
     Dates: start: 20090204
  5. NOVALGIN [Concomitant]
     Indication: RENAL CELL CARCINOMA
     Dosage: UNK
     Dates: start: 20090204
  6. METHOTREXATE SODIUM [Concomitant]
     Dosage: UNK
     Dates: start: 20080201
  7. ZOMETA [Concomitant]
     Indication: RENAL CELL CARCINOMA
     Dosage: UNK
     Dates: start: 20090213

REACTIONS (1)
  - ABSCESS LIMB [None]
